FAERS Safety Report 8553772-9 (Version None)
Quarter: 2012Q3

REPORT INFORMATION
  Report Type: 
  Country: None (occurrence: None)
  Receive Date: 20120731
  Receipt Date: 20120724
  Transmission Date: 20120928
  Serious: Yes (Other)
  Sender: FDA-Public Use
  Company Number: JP-GLAXOSMITHKLINE-B0818511A

PATIENT
  Age: 29 Year
  Sex: Female

DRUGS (3)
  1. CLOBAZAM [Concomitant]
     Route: 048
  2. TEGRETOL [Concomitant]
     Route: 048
  3. LAMICTAL [Suspect]
     Indication: EPILEPSY
     Dosage: 50MG PER DAY
     Route: 048
     Dates: start: 20111206, end: 20120710

REACTIONS (1)
  - SUICIDE ATTEMPT [None]
